FAERS Safety Report 25217035 (Version 1)
Quarter: 2025Q2

REPORT INFORMATION
  Report Type: Spontaneous
  Country: US (occurrence: US)
  Receive Date: 20250419
  Receipt Date: 20250419
  Transmission Date: 20250716
  Serious: Yes (Hospitalization, Other)
  Sender: AUROBINDO
  Company Number: US-MLMSERVICE-20250401-PI460617-00052-3

PATIENT
  Age: 8 Decade
  Sex: Female

DRUGS (8)
  1. AMOXICILLIN [Suspect]
     Active Substance: AMOXICILLIN
     Indication: Peritonsillar abscess
     Route: 065
     Dates: start: 2023, end: 2023
  2. AMOXICILLIN [Suspect]
     Active Substance: AMOXICILLIN
     Indication: Dental disorder prophylaxis
     Route: 065
     Dates: start: 2022
  3. AMOXICILLIN [Suspect]
     Active Substance: AMOXICILLIN
     Indication: Dental care
     Route: 065
     Dates: start: 2017
  4. AMOXICILLIN [Suspect]
     Active Substance: AMOXICILLIN
     Indication: Urinary tract infection
  5. IBUPROFEN [Suspect]
     Active Substance: IBUPROFEN
     Indication: Spinal stenosis
     Route: 065
     Dates: end: 2023
  6. IBUPROFEN [Suspect]
     Active Substance: IBUPROFEN
     Indication: Neuropathy peripheral
  7. BACLOFEN [Concomitant]
     Active Substance: BACLOFEN
     Indication: Sleep disorder
     Route: 065
  8. PROCHLORPERAZINE [Concomitant]
     Active Substance: PROCHLORPERAZINE
     Indication: Nausea
     Route: 065

REACTIONS (2)
  - Meningitis aseptic [Recovered/Resolved]
  - Encephalitis [Recovered/Resolved]

NARRATIVE: CASE EVENT DATE: 20220101
